FAERS Safety Report 8760968 (Version 1)
Quarter: 2012Q4

REPORT INFORMATION
  Report Type: 
  Country: AU (occurrence: AU)
  Receive Date: 20120829
  Receipt Date: 20120829
  Transmission Date: 20130627
  Serious: Yes (Hospitalization, Other)
  Sender: FDA-Public Use
  Company Number: AU-ELI_LILLY_AND_COMPANY-AU201208005156

PATIENT
  Age: 50 Year
  Sex: Male

DRUGS (9)
  1. ZYPREXA RELPREVV [Suspect]
     Indication: SCHIZOPHRENIA
     Dosage: 300 mg, 2/M
     Route: 030
  2. METFORMIN [Concomitant]
     Indication: TYPE 2 DIABETES MELLITUS
  3. PHYSIOTENS [Concomitant]
     Dosage: 200 ug, unknown
  4. AMLODIPINE [Concomitant]
  5. PERINDOPRIL [Concomitant]
  6. LINAGLIPTIN [Concomitant]
     Dosage: 5 mg, qd
  7. DIAZEPAM [Concomitant]
     Dosage: 10 mg, prn
  8. DIAMICRON [Concomitant]
     Dosage: 120 mg, qd
  9. LIPITOR [Concomitant]
     Dosage: 20 mg, qd

REACTIONS (12)
  - Blood pressure decreased [Recovered/Resolved]
  - Somnolence [Recovered/Resolved]
  - Vomiting [Recovered/Resolved]
  - Blood glucose increased [Recovered/Resolved]
  - Disorientation [Recovered/Resolved]
  - Gait disturbance [Recovered/Resolved]
  - Delirium [Recovered/Resolved]
  - Urinary incontinence [Recovered/Resolved]
  - Ataxia [Recovered/Resolved]
  - Sedation [Recovered/Resolved]
  - Confusional state [Recovered/Resolved]
  - Agitation [Recovered/Resolved]
